FAERS Safety Report 6686007-2 (Version None)
Quarter: 2010Q2

REPORT INFORMATION
  Report Type: 
  Country: None (occurrence: None)
  Receive Date: 20100419
  Receipt Date: 20100415
  Transmission Date: 20101027
  Serious: Yes (Death, Hospitalization, Other)
  Sender: FDA-Public Use
  Company Number: PHHY2009GB39967

PATIENT
  Sex: Female

DRUGS (3)
  1. CLOZARIL [Suspect]
     Indication: SCHIZOPHRENIA
     Dosage: UNK
     Dates: start: 20021120
  2. CLOZARIL [Suspect]
     Dosage: UNK
     Dates: start: 20090914
  3. INSULIN [Concomitant]

REACTIONS (14)
  - ANAEMIA [None]
  - ANTIPSYCHOTIC DRUG LEVEL INCREASED [None]
  - BACK PAIN [None]
  - CARDIO-RESPIRATORY ARREST [None]
  - DIABETIC KETOACIDOSIS [None]
  - DIARRHOEA [None]
  - DYSPNOEA [None]
  - FAECALOMA [None]
  - INTESTINAL INFARCTION [None]
  - PALLOR [None]
  - SOMNOLENCE [None]
  - URINARY RETENTION [None]
  - VISUAL IMPAIRMENT [None]
  - VOMITING [None]
